FAERS Safety Report 10684499 (Version 1)
Quarter: 2014Q4

REPORT INFORMATION
  Report Type: Spontaneous
  Country: US (occurrence: None)
  Receive Date: 20141230
  Receipt Date: 20141230
  Transmission Date: 20150529
  Serious: Yes (Other)
  Sender: FDA-Public Use
  Company Number: None

PATIENT
  Age: 51 Year
  Sex: Male
  Weight: 90.72 kg

DRUGS (1)
  1. ZYLAST XP ANTISEPTIC [Suspect]
     Active Substance: BENZETHONIUM CHLORIDE
     Indication: INFECTION PROPHYLAXIS
     Dosage: 1 APPLICATION SKIN
     Route: 061
     Dates: start: 20141214, end: 20141214

REACTIONS (2)
  - Product label confusion [None]
  - Drug hypersensitivity [None]

NARRATIVE: CASE EVENT DATE: 20141214
